FAERS Safety Report 11390137 (Version 1)
Quarter: 2015Q3

REPORT INFORMATION
  Report Type: Spontaneous
  Country: US (occurrence: US)
  Receive Date: 20150818
  Receipt Date: 20150818
  Transmission Date: 20151125
  Serious: Yes (Other)
  Sender: FDA-Public Use
  Company Number: US-ROCHE-1622407

PATIENT
  Age: 39 Year
  Sex: Male
  Weight: 79.6 kg

DRUGS (1)
  1. MIRCERA [Suspect]
     Active Substance: METHOXY POLYETHYLENE GLYCOL-EPOETIN BETA
     Indication: PRODUCT USED FOR UNKNOWN INDICATION
     Route: 065
     Dates: start: 20150729

REACTIONS (3)
  - Pruritus [Unknown]
  - Tunnel vision [Unknown]
  - Flushing [Unknown]

NARRATIVE: CASE EVENT DATE: 20150729
